FAERS Safety Report 10508684 (Version 1)
Quarter: 2014Q4

REPORT INFORMATION
  Report Type: Report from Study
  Country: BR (occurrence: BR)
  Receive Date: 20141009
  Receipt Date: 20141009
  Transmission Date: 20150528
  Serious: Yes (Other)
  Sender: FDA-Public Use
  Company Number: BR-BRISTOL-MYERS SQUIBB COMPANY-21474341

PATIENT
  Sex: Male

DRUGS (1)
  1. GLIFAGE XR [Suspect]
     Active Substance: METFORMIN HYDROCHLORIDE

REACTIONS (5)
  - Dysentery [Recovered/Resolved]
  - Product quality issue [Unknown]
  - Diabetes mellitus inadequate control [Recovered/Resolved]
  - Medication residue present [Recovered/Resolved]
  - Malaise [Recovered/Resolved]
